FAERS Safety Report 4382460-8 (Version None)
Quarter: 2004Q2

REPORT INFORMATION
  Report Type: 
  Country: None (occurrence: None)
  Receive Date: 20040617
  Receipt Date: 20040610
  Transmission Date: 20050107
  Serious: Yes (Other)
  Sender: FDA-Public Use
  Company Number: HQWYE353526FEB04

PATIENT
  Age: 6 Year
  Sex: Female

DRUGS (7)
  1. EFFEXOR [Suspect]
     Indication: ATTENTION DEFICIT/HYPERACTIVITY DISORDER
     Dosage: SEE IMAGE
     Route: 048
  2. EFFEXOR [Suspect]
     Indication: BIPOLAR I DISORDER
     Dosage: SEE IMAGE
     Route: 048
  3. EFFEXOR [Suspect]
     Indication: OBSESSIVE-COMPULSIVE DISORDER
     Dosage: SEE IMAGE
     Route: 048
  4. EFFEXOR [Suspect]
     Indication: ATTENTION DEFICIT/HYPERACTIVITY DISORDER
     Dosage: SEE IMAGE
     Route: 048
     Dates: start: 20031001
  5. EFFEXOR [Suspect]
     Indication: BIPOLAR I DISORDER
     Dosage: SEE IMAGE
     Route: 048
     Dates: start: 20031001
  6. EFFEXOR [Suspect]
     Indication: OBSESSIVE-COMPULSIVE DISORDER
     Dosage: SEE IMAGE
     Route: 048
     Dates: start: 20031001
  7. LITHIUM (LITHIUM) [Concomitant]

REACTIONS (11)
  - AGGRESSION [None]
  - BRUXISM [None]
  - DRUG INEFFECTIVE [None]
  - DRUG WITHDRAWAL SYNDROME [None]
  - INTENTIONAL SELF-INJURY [None]
  - INTERMITTENT EXPLOSIVE DISORDER [None]
  - IRRITABILITY [None]
  - LEARNING DISORDER [None]
  - PANIC ATTACK [None]
  - SENSORY INTEGRATIVE DYSFUNCTION [None]
  - TIC [None]
